FAERS Safety Report 24545596 (Version 1)
Quarter: 2024Q4

REPORT INFORMATION
  Report Type: Spontaneous
  Country: US (occurrence: US)
  Receive Date: 20241024
  Receipt Date: 20241024
  Transmission Date: 20250115
  Serious: Yes (Other)
  Sender: ELI LILLY AND COMPANY
  Company Number: US-ELI_LILLY_AND_COMPANY-US202410011484

PATIENT
  Age: 56 Year
  Sex: Male

DRUGS (50)
  1. MOUNJARO [Suspect]
     Active Substance: TIRZEPATIDE
     Indication: Blood cholesterol
     Dosage: 2.5 MG, UNKNOWN
     Route: 058
     Dates: start: 2022
  2. MOUNJARO [Suspect]
     Active Substance: TIRZEPATIDE
     Indication: Blood cholesterol
     Dosage: 2.5 MG, UNKNOWN
     Route: 058
     Dates: start: 2022
  3. MOUNJARO [Suspect]
     Active Substance: TIRZEPATIDE
     Indication: Blood cholesterol
     Dosage: 2.5 MG, UNKNOWN
     Route: 058
     Dates: start: 2022
  4. MOUNJARO [Suspect]
     Active Substance: TIRZEPATIDE
     Indication: Blood cholesterol
     Dosage: 2.5 MG, UNKNOWN
     Route: 058
     Dates: start: 2022
  5. MOUNJARO [Suspect]
     Active Substance: TIRZEPATIDE
     Indication: Blood pressure increased
  6. MOUNJARO [Suspect]
     Active Substance: TIRZEPATIDE
     Indication: Blood pressure increased
  7. MOUNJARO [Suspect]
     Active Substance: TIRZEPATIDE
     Indication: Blood pressure increased
  8. MOUNJARO [Suspect]
     Active Substance: TIRZEPATIDE
     Indication: Blood pressure increased
  9. MOUNJARO [Suspect]
     Active Substance: TIRZEPATIDE
     Indication: Blood cholesterol
     Dosage: 5 MG, UNKNOWN
     Route: 058
  10. MOUNJARO [Suspect]
     Active Substance: TIRZEPATIDE
     Indication: Blood cholesterol
     Dosage: 5 MG, UNKNOWN
     Route: 058
  11. MOUNJARO [Suspect]
     Active Substance: TIRZEPATIDE
     Indication: Blood cholesterol
     Dosage: 5 MG, UNKNOWN
     Route: 058
  12. MOUNJARO [Suspect]
     Active Substance: TIRZEPATIDE
     Indication: Blood cholesterol
     Dosage: 5 MG, UNKNOWN
     Route: 058
  13. MOUNJARO [Suspect]
     Active Substance: TIRZEPATIDE
     Indication: Blood pressure increased
  14. MOUNJARO [Suspect]
     Active Substance: TIRZEPATIDE
     Indication: Blood pressure increased
  15. MOUNJARO [Suspect]
     Active Substance: TIRZEPATIDE
     Indication: Blood pressure increased
  16. MOUNJARO [Suspect]
     Active Substance: TIRZEPATIDE
     Indication: Blood pressure increased
  17. MOUNJARO [Suspect]
     Active Substance: TIRZEPATIDE
     Indication: Blood cholesterol
     Dosage: 7.5 MG, UNKNOWN
     Route: 058
  18. MOUNJARO [Suspect]
     Active Substance: TIRZEPATIDE
     Indication: Blood cholesterol
     Dosage: 7.5 MG, UNKNOWN
     Route: 058
  19. MOUNJARO [Suspect]
     Active Substance: TIRZEPATIDE
     Indication: Blood cholesterol
     Dosage: 7.5 MG, UNKNOWN
     Route: 058
  20. MOUNJARO [Suspect]
     Active Substance: TIRZEPATIDE
     Indication: Blood cholesterol
     Dosage: 7.5 MG, UNKNOWN
     Route: 058
  21. MOUNJARO [Suspect]
     Active Substance: TIRZEPATIDE
     Indication: Blood pressure increased
  22. MOUNJARO [Suspect]
     Active Substance: TIRZEPATIDE
     Indication: Blood pressure increased
  23. MOUNJARO [Suspect]
     Active Substance: TIRZEPATIDE
     Indication: Blood pressure increased
  24. MOUNJARO [Suspect]
     Active Substance: TIRZEPATIDE
     Indication: Blood pressure increased
  25. MOUNJARO [Suspect]
     Active Substance: TIRZEPATIDE
     Indication: Blood cholesterol
     Dosage: 10 MG, UNKNOWN
     Route: 058
  26. MOUNJARO [Suspect]
     Active Substance: TIRZEPATIDE
     Indication: Blood cholesterol
     Dosage: 10 MG, UNKNOWN
     Route: 058
  27. MOUNJARO [Suspect]
     Active Substance: TIRZEPATIDE
     Indication: Blood cholesterol
     Dosage: 10 MG, UNKNOWN
     Route: 058
  28. MOUNJARO [Suspect]
     Active Substance: TIRZEPATIDE
     Indication: Blood cholesterol
     Dosage: 10 MG, UNKNOWN
     Route: 058
  29. MOUNJARO [Suspect]
     Active Substance: TIRZEPATIDE
     Indication: Blood pressure increased
  30. MOUNJARO [Suspect]
     Active Substance: TIRZEPATIDE
     Indication: Blood pressure increased
  31. MOUNJARO [Suspect]
     Active Substance: TIRZEPATIDE
     Indication: Blood pressure increased
  32. MOUNJARO [Suspect]
     Active Substance: TIRZEPATIDE
     Indication: Blood pressure increased
  33. MOUNJARO [Suspect]
     Active Substance: TIRZEPATIDE
     Indication: Blood cholesterol
     Dosage: 12.5 MG, UNKNOWN
     Route: 058
  34. MOUNJARO [Suspect]
     Active Substance: TIRZEPATIDE
     Indication: Blood cholesterol
     Dosage: 12.5 MG, UNKNOWN
     Route: 058
  35. MOUNJARO [Suspect]
     Active Substance: TIRZEPATIDE
     Indication: Blood cholesterol
     Dosage: 12.5 MG, UNKNOWN
     Route: 058
  36. MOUNJARO [Suspect]
     Active Substance: TIRZEPATIDE
     Indication: Blood cholesterol
     Dosage: 12.5 MG, UNKNOWN
     Route: 058
  37. MOUNJARO [Suspect]
     Active Substance: TIRZEPATIDE
     Indication: Blood pressure increased
  38. MOUNJARO [Suspect]
     Active Substance: TIRZEPATIDE
     Indication: Blood pressure increased
  39. MOUNJARO [Suspect]
     Active Substance: TIRZEPATIDE
     Indication: Blood pressure increased
  40. MOUNJARO [Suspect]
     Active Substance: TIRZEPATIDE
     Indication: Blood pressure increased
  41. MOUNJARO [Suspect]
     Active Substance: TIRZEPATIDE
     Indication: Blood cholesterol
     Dosage: 15 MG, UNKNOWN
     Route: 058
  42. MOUNJARO [Suspect]
     Active Substance: TIRZEPATIDE
     Indication: Blood cholesterol
     Dosage: 15 MG, UNKNOWN
     Route: 058
  43. MOUNJARO [Suspect]
     Active Substance: TIRZEPATIDE
     Indication: Blood cholesterol
     Dosage: 15 MG, UNKNOWN
     Route: 058
  44. MOUNJARO [Suspect]
     Active Substance: TIRZEPATIDE
     Indication: Blood cholesterol
     Dosage: 15 MG, UNKNOWN
     Route: 058
  45. MOUNJARO [Suspect]
     Active Substance: TIRZEPATIDE
     Indication: Blood pressure increased
  46. MOUNJARO [Suspect]
     Active Substance: TIRZEPATIDE
     Indication: Blood pressure increased
  47. MOUNJARO [Suspect]
     Active Substance: TIRZEPATIDE
     Indication: Blood pressure increased
  48. MOUNJARO [Suspect]
     Active Substance: TIRZEPATIDE
     Indication: Blood pressure increased
  49. IRBESARTAN [Concomitant]
     Active Substance: IRBESARTAN
     Indication: Blood pressure increased
  50. CRESTOR [Concomitant]
     Active Substance: ROSUVASTATIN CALCIUM
     Indication: Blood cholesterol

REACTIONS (4)
  - Neoplasm malignant [Unknown]
  - Off label use [Unknown]
  - Injection site erythema [Unknown]
  - Injection site irritation [Unknown]
